FAERS Safety Report 6595523 (Version 15)
Quarter: 2014Q1

REPORT INFORMATION
  Report Type: Spontaneous
  Country: US (occurrence: US)
  Receive Date: 20080327
  Receipt Date: 20140131
  Transmission Date: 20141002
  Serious: Yes (Other)
  Sender: FDA-Public Use
  Company Number: PHEH2008US02877

PATIENT
  Age: 63 Year
  Sex: Male

DRUGS (12)
  1. AREDIA [Suspect]
     Indication: PLASMA CELL MYELOMA
     Route: 042
     Dates: start: 2000
  2. ZOMETA [Suspect]
     Indication: PLASMA CELL MYELOMA
     Dosage: 4 MG, UNK
     Route: 042
  3. ZOCOR ^MERCK^ [Concomitant]
  4. PAXIL [Concomitant]
  5. ACYCLOVIR [Concomitant]
  6. PHENYTOIN [Concomitant]
  7. INSULIN [Concomitant]
  8. TOPROL XL [Concomitant]
  9. PERIDEX [Concomitant]
  10. CIPRO ^MILES^ [Concomitant]
  11. PEN-VEE-K [Concomitant]
  12. DOXYCYCLINE [Concomitant]

REACTIONS (82)
  - Cough [Unknown]
  - Dyspnoea [Unknown]
  - Melanocytic naevus [Unknown]
  - Actinic keratosis [Unknown]
  - Weight decreased [Unknown]
  - Lipoma [Unknown]
  - Dizziness [Unknown]
  - Primary sequestrum [Unknown]
  - Osteosclerosis [Unknown]
  - Wound dehiscence [Unknown]
  - Osteoporosis [Unknown]
  - Lordosis [Unknown]
  - Spinal osteoarthritis [Unknown]
  - Spinal disorder [Unknown]
  - Lymph node calcification [Unknown]
  - Arteriosclerosis coronary artery [Unknown]
  - Splenic calcification [Unknown]
  - Osteoarthritis [Unknown]
  - Vascular calcification [Unknown]
  - Tendon calcification [Unknown]
  - Tendonitis [Unknown]
  - Thyroid neoplasm [Unknown]
  - Vertebral osteophyte [Unknown]
  - Enthesopathy [Unknown]
  - Hepatic steatosis [Unknown]
  - Periodontal disease [Unknown]
  - Device related infection [Unknown]
  - Diabetic retinopathy [Unknown]
  - Retinal infarction [Unknown]
  - Hypertension [Unknown]
  - Hyperlipidaemia [Unknown]
  - Cholecystitis chronic [Unknown]
  - Kidney fibrosis [Unknown]
  - Inflammation [Unknown]
  - Stomatitis [Unknown]
  - Sinus bradycardia [Unknown]
  - Bundle branch block left [Unknown]
  - Confusional state [Unknown]
  - Depression [Unknown]
  - Arthropathy [Unknown]
  - Grand mal convulsion [Unknown]
  - Brain mass [Unknown]
  - Renal cell carcinoma [Unknown]
  - Renal mass [Unknown]
  - Pancreatic carcinoma [Unknown]
  - Small intestine carcinoma [Unknown]
  - Jaundice cholestatic [Unknown]
  - Biliary dilatation [Unknown]
  - Osteonecrosis of jaw [Unknown]
  - Injury [Unknown]
  - Pain [Unknown]
  - Anxiety [Unknown]
  - Disability [Unknown]
  - Activities of daily living impaired [Unknown]
  - Osteomyelitis acute [Unknown]
  - Herpes virus infection [Unknown]
  - Diabetes mellitus [Unknown]
  - Hemiparesis [Unknown]
  - Transient ischaemic attack [Unknown]
  - Enterobacter infection [Unknown]
  - Prostatomegaly [Unknown]
  - Alpha haemolytic streptococcal infection [Unknown]
  - Second primary malignancy [Unknown]
  - Urinary retention [Unknown]
  - Pancreatic duct obstruction [Unknown]
  - Serositis [Unknown]
  - Adenocarcinoma [Unknown]
  - Benign prostatic hyperplasia [Unknown]
  - Squamous cell carcinoma [Unknown]
  - Bone lesion [Unknown]
  - Hepatic lesion [Unknown]
  - Metastatic neoplasm [Unknown]
  - Renal cyst [Unknown]
  - Malignant melanoma [Unknown]
  - Hyperplasia [Unknown]
  - Pigmentation disorder [Unknown]
  - Seborrhoeic keratosis [Unknown]
  - Gallbladder disorder [Unknown]
  - Blindness [Unknown]
  - Pancreatic mass [Unknown]
  - Scar [Unknown]
  - Exercise tolerance decreased [Unknown]
